FAERS Safety Report 16134501 (Version 1)
Quarter: 2019Q1

REPORT INFORMATION
  Report Type: Report from Study
  Country: US (occurrence: US)
  Receive Date: 20190329
  Receipt Date: 20190329
  Transmission Date: 20190418
  Serious: Yes (Death)
  Sender: FDA-Public Use
  Company Number: US-TAIHO ONCOLOGY  INC-EU-2019-00912

PATIENT
  Sex: Male
  Weight: 68.55 kg

DRUGS (1)
  1. LONSURF [Suspect]
     Active Substance: TIPIRACIL HYDROCHLORIDE\TRIFLURIDINE
     Indication: COLON CANCER
     Dosage: CYCLE 1 COMPLETED. LONSURF THEN DISCONTINUED.
     Route: 048
     Dates: start: 20190222

REACTIONS (2)
  - Jaundice [Unknown]
  - Death [Fatal]

NARRATIVE: CASE EVENT DATE: 2019
